FAERS Safety Report 6392706-2 (Version None)
Quarter: 2009Q4

REPORT INFORMATION
  Report Type: 
  Country: None (occurrence: None)
  Receive Date: 20091007
  Receipt Date: 20090724
  Transmission Date: 20100525
  Serious: No
  Sender: FDA-Public Use
  Company Number: US-ALLERGAN-0910376US

PATIENT
  Age: 58 Year
  Sex: Female

DRUGS (2)
  1. LATISSE [Suspect]
     Indication: GROWTH OF EYELASHES
     Dosage: 1 GTT, QHS
     Route: 061
     Dates: start: 20090101, end: 20090101
  2. LATISSE [Suspect]
     Dosage: UNK, QHS
     Route: 061
     Dates: start: 20090101, end: 20090101

REACTIONS (1)
  - ERYTHEMA [None]
